FAERS Safety Report 9142322 (Version 3)
Quarter: 2013Q2

REPORT INFORMATION
  Report Type: Spontaneous
  Country: US (occurrence: US)
  Receive Date: 20130306
  Receipt Date: 20130612
  Transmission Date: 20140414
  Serious: Yes (Other)
  Sender: FDA-Public Use
  Company Number: US-PAR PHARMACEUTICAL, INC-2013SCPR005583

PATIENT
  Sex: 0

DRUGS (7)
  1. WARFARIN [Concomitant]
     Indication: PRODUCT USED FOR UNKNOWN INDICATION
     Dosage: UNK, UNKNOWN
     Route: 065
  2. DILTIAZEM HCL [Suspect]
     Indication: ATRIAL FIBRILLATION
     Dosage: 1 DF, OD
     Route: 048
     Dates: start: 2012, end: 20130220
  3. SOTALOL [Concomitant]
     Indication: HYPERTENSION
     Dosage: 1 DF, BID
     Route: 048
  4. FUROSEMIDE [Concomitant]
     Indication: HYPERTENSION
     Dosage: 1 DF, OD
     Route: 048
  5. VITAMIN D                          /00107901/ [Concomitant]
     Indication: CALCIUM DEFICIENCY
     Dosage: 1 DF, OD
     Route: 048
  6. POTASSIUM [Concomitant]
     Indication: PRODUCT USED FOR UNKNOWN INDICATION
     Dosage: UNK, UNKNOWN
     Route: 065
  7. LIPITOR [Concomitant]
     Indication: PRODUCT USED FOR UNKNOWN INDICATION
     Dosage: 1 DF, BID
     Route: 048

REACTIONS (5)
  - Heart rate irregular [Recovered/Resolved]
  - Cardiac discomfort [Recovered/Resolved]
  - Dysphagia [Recovered/Resolved]
  - Oesophageal pain [Recovered/Resolved]
  - Nausea [Recovered/Resolved]
